FAERS Safety Report 6156306-1 (Version None)
Quarter: 2009Q2

REPORT INFORMATION
  Report Type: 
  Country: None (occurrence: None)
  Receive Date: 20090415
  Receipt Date: 20090331
  Transmission Date: 20091009
  Serious: Yes (Hospitalization)
  Sender: FDA-Public Use
  Company Number: JP-GENENTECH-281049

PATIENT
  Sex: Male

DRUGS (6)
  1. BLINDED BEVACIZUMAB [Suspect]
     Indication: METASTATIC GASTRIC CANCER
     Dosage: UNK
     Route: 042
     Dates: start: 20080808
  2. BLINDED CAPECITABINE [Suspect]
     Indication: METASTATIC GASTRIC CANCER
     Dosage: UNK
     Route: 042
     Dates: start: 20080808
  3. BLINDED CISPLATIN [Suspect]
     Indication: METASTATIC GASTRIC CANCER
     Dosage: UNK
     Route: 042
     Dates: start: 20080808
  4. BLINDED PLACEBO [Suspect]
     Indication: METASTATIC GASTRIC CANCER
     Dosage: UNK
     Route: 042
     Dates: start: 20080808
  5. CAPECITABINE [Suspect]
     Indication: METASTATIC GASTRIC CANCER
     Dosage: 2000 MG/M2, BID
     Route: 048
     Dates: start: 20080808
  6. CISPLATIN [Suspect]
     Indication: METASTATIC GASTRIC CANCER
     Dosage: 80 MG/M2, Q3W
     Route: 042
     Dates: start: 20080808

REACTIONS (1)
  - INTESTINAL OBSTRUCTION [None]
